FAERS Safety Report 6061158-4 (Version None)
Quarter: 2009Q1

REPORT INFORMATION
  Report Type: 
  Country: None (occurrence: None)
  Receive Date: 20090202
  Receipt Date: 20090120
  Transmission Date: 20090719
  Serious: Yes (Hospitalization)
  Sender: FDA-Public Use
  Company Number: DE-BIOGENIDEC-2009BI001901

PATIENT
  Age: 30 Year
  Sex: Female
  Weight: 98 kg

DRUGS (6)
  1. TYSABRI [Suspect]
     Indication: RELAPSING-REMITTING MULTIPLE SCLEROSIS
     Route: 042
     Dates: start: 20080820, end: 20080829
  2. VIANI [Concomitant]
     Indication: DRUG USE FOR UNKNOWN INDICATION
     Route: 048
  3. VIANI [Concomitant]
     Route: 048
  4. METOPROLOL SUCCINATE [Concomitant]
     Indication: DRUG USE FOR UNKNOWN INDICATION
     Route: 048
  5. XYSAL [Concomitant]
     Indication: DRUG USE FOR UNKNOWN INDICATION
  6. CONTRACEPTIVE [Concomitant]
     Indication: CONTRACEPTION
     Route: 048

REACTIONS (6)
  - APHASIA [None]
  - BRAIN STEM SYNDROME [None]
  - DIPLOPIA [None]
  - HEMIPARESIS [None]
  - RETINAL ARTERY OCCLUSION [None]
  - SENSORIMOTOR DISORDER [None]
